FAERS Safety Report 5423534-X (Version None)
Quarter: 2007Q3

REPORT INFORMATION
  Report Type: 
  Country: None (occurrence: None)
  Receive Date: 20070821
  Receipt Date: 20070821
  Transmission Date: 20080115
  Serious: Yes (Death)
  Sender: FDA-Public Use
  Company Number: None

PATIENT
  Age: 53 Year
  Sex: Male
  Weight: 55 kg

DRUGS (5)
  1. ETODOLAC [Suspect]
     Indication: CACHEXIA
     Dosage: BD ORAL
     Route: 048
     Dates: start: 20040704, end: 20070710
  2. PROPRANOLOL 20MG(10MG NOON, 10MG EVENING) [Suspect]
     Indication: CACHEXIA
     Dosage: BD ORAL
     Route: 048
     Dates: start: 20070704, end: 20070710
  3. ZOLEDRONIC ACID [Concomitant]
  4. NEUROBION-SUPPLEMENT [Concomitant]
  5. FAMOTIDINE-ANTACID [Concomitant]

REACTIONS (6)
  - ACUTE RESPIRATORY DISTRESS SYNDROME [None]
  - DYSPNOEA [None]
  - HAEMOPTYSIS [None]
  - HEART RATE INCREASED [None]
  - RESPIRATORY RATE INCREASED [None]
  - VERTIGO [None]
